FAERS Safety Report 21289491 (Version 2)
Quarter: 2022Q3

REPORT INFORMATION
  Report Type: Spontaneous
  Country: AU (occurrence: AU)
  Receive Date: 20220902
  Receipt Date: 20220915
  Transmission Date: 20221027
  Serious: Yes (Death, Hospitalization)
  Sender: FDA-Public Use
  Company Number: AU-KARYOPHARM-2022KPT001001

PATIENT

DRUGS (2)
  1. XPOVIO [Suspect]
     Active Substance: SELINEXOR
     Indication: Plasma cell myeloma
     Dosage: 80 MG, CYCLIC
     Route: 048
     Dates: start: 20220819, end: 20220826
  2. DEXAMETHASONE SODIUM SUCCINATE [Concomitant]
     Active Substance: DEXAMETHASONE SODIUM SUCCINATE
     Dosage: UNK
     Dates: start: 20220819, end: 20220822

REACTIONS (3)
  - Death [Fatal]
  - Fluid retention [Unknown]
  - Asthenia [Unknown]

NARRATIVE: CASE EVENT DATE: 20220821
